FAERS Safety Report 12853073 (Version 1)
Quarter: 2016Q4

REPORT INFORMATION
  Report Type: Spontaneous
  Country: US (occurrence: US)
  Receive Date: 20161017
  Receipt Date: 20161017
  Transmission Date: 20170207
  Serious: No
  Sender: FDA-Public Use
  Company Number: US-JAZZ-2016-US-014139

PATIENT
  Sex: Male

DRUGS (41)
  1. OLANZAPINE. [Concomitant]
     Active Substance: OLANZAPINE
  2. SINGULAIR [Concomitant]
     Active Substance: MONTELUKAST SODIUM
  3. GABAPENTIN. [Concomitant]
     Active Substance: GABAPENTIN
  4. MUCINEX [Concomitant]
     Active Substance: GUAIFENESIN
  5. COLACE [Concomitant]
     Active Substance: DOCUSATE SODIUM
  6. AFRIN [Concomitant]
     Active Substance: OXYMETAZOLINE
  7. LATUDA [Concomitant]
     Active Substance: LURASIDONE HYDROCHLORIDE
  8. PRILOSEC [Concomitant]
     Active Substance: OMEPRAZOLE MAGNESIUM
  9. QUINAPRIL. [Concomitant]
     Active Substance: QUINAPRIL
  10. SEROQUEL [Concomitant]
     Active Substance: QUETIAPINE FUMARATE
  11. XYREM [Suspect]
     Active Substance: SODIUM OXYBATE
     Dosage: 4.5 G, BID
     Route: 048
     Dates: start: 200901
  12. BUSPIRONE HCL [Concomitant]
     Active Substance: BUSPIRONE HYDROCHLORIDE
  13. BENTYL [Concomitant]
     Active Substance: DICYCLOMINE HYDROCHLORIDE
  14. FLONASE [Concomitant]
     Active Substance: FLUTICASONE PROPIONATE
  15. FLUOXETINE [Concomitant]
     Active Substance: FLUOXETINE HYDROCHLORIDE
  16. GINGER. [Concomitant]
     Active Substance: GINGER
  17. MULTIVITAMINS [Concomitant]
     Active Substance: VITAMINS
  18. MICROZIDE [Concomitant]
     Active Substance: HYDROCHLOROTHIAZIDE
  19. NUVIGIL [Concomitant]
     Active Substance: ARMODAFINIL
  20. CLARITIN [Concomitant]
     Active Substance: LORATADINE
  21. ATROVENT HFA [Concomitant]
     Active Substance: IPRATROPIUM BROMIDE
  22. VIIBRYD [Concomitant]
     Active Substance: VILAZODONE HYDROCHLORIDE
  23. ZYRTEC [Concomitant]
     Active Substance: CETIRIZINE HYDROCHLORIDE
  24. BENADRYL [Concomitant]
     Active Substance: DIPHENHYDRAMINE HYDROCHLORIDE
  25. XYREM [Suspect]
     Active Substance: SODIUM OXYBATE
     Indication: NARCOLEPSY
     Dosage: 2.25 G, BID
     Route: 048
     Dates: start: 200812, end: 200901
  26. BENZTROPINE MESILATE [Concomitant]
     Active Substance: BENZTROPINE MESYLATE
  27. LISINOPRIL. [Concomitant]
     Active Substance: LISINOPRIL
  28. VERAPAMIL [Concomitant]
     Active Substance: VERAPAMIL HYDROCHLORIDE
  29. PROMETHAZINE VC [Concomitant]
     Active Substance: PHENYLEPHRINE HYDROCHLORIDE\PROMETHAZINE HYDROCHLORIDE
  30. XYREM [Suspect]
     Active Substance: SODIUM OXYBATE
     Dosage: DOSE ADJUSTMENTS
     Route: 048
     Dates: start: 200901, end: 200901
  31. FISH OIL [Concomitant]
     Active Substance: FISH OIL
  32. PROVIGIL [Concomitant]
     Active Substance: MODAFINIL
  33. ALPRAZOLAM. [Concomitant]
     Active Substance: ALPRAZOLAM
  34. ATORVASTATIN [Concomitant]
     Active Substance: ATORVASTATIN
  35. OMEPRAZOLE. [Concomitant]
     Active Substance: OMEPRAZOLE
  36. PAMELOR [Concomitant]
     Active Substance: NORTRIPTYLINE HYDROCHLORIDE
  37. TEGRETOL [Concomitant]
     Active Substance: CARBAMAZEPINE
  38. TESSALON [Concomitant]
     Active Substance: BENZONATATE
  39. CLONAZEPAM. [Concomitant]
     Active Substance: CLONAZEPAM
  40. RITALIN [Concomitant]
     Active Substance: METHYLPHENIDATE HYDROCHLORIDE
  41. VICKS NYQUIL [Concomitant]
     Active Substance: ACETAMINOPHEN\DEXTROMETHORPHAN HYDROBROMIDE\DOXYLAMINE SUCCINATE

REACTIONS (2)
  - Anxiety [Unknown]
  - Depression [Unknown]
